FAERS Safety Report 8898704 (Version 1)
Quarter: 2012Q4

REPORT INFORMATION
  Report Type: 
  Country: IT (occurrence: IT)
  Receive Date: 20121109
  Receipt Date: 20121109
  Transmission Date: 20130627
  Serious: Yes (Other)
  Sender: FDA-Public Use
  Company Number: IT-ABBOTT-12P-083-1006171-00

PATIENT
  Age: 32 Year
  Sex: Male

DRUGS (8)
  1. CYCLOSPORINE [Suspect]
     Indication: PRODUCT USED FOR UNKNOWN INDICATION
  2. ART THERAPY [Concomitant]
     Indication: PRODUCT USED FOR UNKNOWN INDICATION
  3. PROTEASE INHIBITORS [Concomitant]
     Indication: PRODUCT USED FOR UNKNOWN INDICATION
  4. METHYLPREDISOLONE [Concomitant]
     Indication: IMMUNOSUPPRESSANT DRUG THERAPY
  5. LAMIVUDINE [Concomitant]
     Indication: ANTIRETROVIRAL THERAPY
  6. RALTEGRAVIR [Concomitant]
     Indication: ANTIRETROVIRAL THERAPY
  7. ATAZANAVIR [Concomitant]
     Indication: ANTIRETROVIRAL THERAPY
  8. ATAZANAVIR [Concomitant]

REACTIONS (1)
  - Osteonecrosis [Unknown]
